FAERS Safety Report 9138253 (Version 7)
Quarter: 2018Q2

REPORT INFORMATION
  Report Type: Spontaneous
  Country: BR (occurrence: BR)
  Receive Date: 20130305
  Receipt Date: 20180410
  Transmission Date: 20180711
  Serious: Yes (Other)
  Sender: FDA-Public Use
  Company Number: BR-AMGEN-BRASP2013014325

PATIENT
  Age: 69 Year
  Sex: Female
  Weight: 75 kg

DRUGS (7)
  1. ENBREL [Suspect]
     Active Substance: ETANERCEPT
     Dosage: 50 MG, ONCE A WEEK
     Route: 058
     Dates: start: 20130301, end: 201408
  2. NIMESULIDE [Concomitant]
     Active Substance: NIMESULIDE
     Dosage: UNK UNK, QD
  3. OMEPRAZOL [Concomitant]
     Active Substance: OMEPRAZOLE
     Indication: ABDOMINAL DISCOMFORT
     Dosage: UNK
  4. ENBREL [Suspect]
     Active Substance: ETANERCEPT
     Indication: RHEUMATOID ARTHRITIS
     Dosage: 50 MG, 1X/WEEK
     Route: 058
     Dates: start: 201211, end: 201212
  5. DICLOFENAC SODIUM. [Concomitant]
     Active Substance: DICLOFENAC SODIUM
     Indication: PAIN
     Dosage: UNK, AS NEEDED
  6. BUSCOPAN [Concomitant]
     Active Substance: BUTYLSCOPOLAMINE BROMIDE
     Indication: PAIN
     Dosage: UNK, AS NEEDED
  7. ENBREL [Suspect]
     Active Substance: ETANERCEPT
     Dosage: UNK
     Route: 065

REACTIONS (19)
  - Diabetes mellitus [Recovered/Resolved]
  - Peripheral swelling [Unknown]
  - Arthralgia [Unknown]
  - Joint swelling [Not Recovered/Not Resolved]
  - Swelling [Not Recovered/Not Resolved]
  - Pain in extremity [Unknown]
  - Limb deformity [Unknown]
  - Renal disorder [Unknown]
  - Skin discolouration [Unknown]
  - Gait disturbance [Unknown]
  - Blister [Unknown]
  - Lung disorder [Unknown]
  - Balance disorder [Unknown]
  - Drug effect incomplete [Unknown]
  - Bone disorder [Unknown]
  - Pruritus generalised [Unknown]
  - Asthenia [Unknown]
  - Muscle spasms [Unknown]
  - Osteoarthritis [Unknown]

NARRATIVE: CASE EVENT DATE: 201301
